FAERS Safety Report 8313019-5 (Version None)
Quarter: 2012Q2

REPORT INFORMATION
  Report Type: 
  Country: None (occurrence: None)
  Receive Date: 20120426
  Receipt Date: 20120420
  Transmission Date: 20120825
  Serious: Yes (Other)
  Sender: FDA-Public Use
  Company Number: US-AMGEN-USASP2011035520

PATIENT
  Age: 55 Year
  Sex: Male

DRUGS (1)
  1. ENBREL [Suspect]
     Indication: PSORIATIC ARTHROPATHY
     Dosage: 50 MG, QWK
     Dates: start: 20110209

REACTIONS (5)
  - JOINT STIFFNESS [None]
  - GASTROINTESTINAL INFECTION [None]
  - HYPOAESTHESIA [None]
  - PARAESTHESIA [None]
  - ARTHRALGIA [None]
